FAERS Safety Report 26041599 (Version 1)
Quarter: 2025Q4

REPORT INFORMATION
  Report Type: Spontaneous
  Country: US (occurrence: US)
  Receive Date: 20251113
  Receipt Date: 20251113
  Transmission Date: 20260117
  Serious: Yes (Death)
  Sender: FERRING
  Company Number: US-FERRINGPH-2025FE06622

PATIENT

DRUGS (1)
  1. ADSTILADRIN [Suspect]
     Active Substance: NADOFARAGENE FIRADENOVEC-VNCG
     Indication: Product used for unknown indication
     Dosage: 2 DOSES
     Route: 065

REACTIONS (2)
  - Sudden death [Fatal]
  - Illness [Unknown]
